FAERS Safety Report 24681773 (Version 2)
Quarter: 2025Q3

REPORT INFORMATION
  Report Type: Spontaneous
  Country: CA (occurrence: CA)
  Receive Date: 20241130
  Receipt Date: 20250809
  Transmission Date: 20251020
  Serious: Yes (Hospitalization, Congenital Anomaly, Other)
  Sender: ALEXION PHARMACEUTICALS
  Company Number: CA-ASTRAZENECA-202411CAN018352CA

PATIENT
  Sex: Female

DRUGS (2)
  1. QUETIAPINE FUMARATE [Suspect]
     Active Substance: QUETIAPINE FUMARATE
     Indication: Foetal exposure during pregnancy
  2. FLUOXETINE HYDROCHLORIDE [Suspect]
     Active Substance: FLUOXETINE HYDROCHLORIDE
     Indication: Foetal exposure during pregnancy

REACTIONS (6)
  - Developmental hip dysplasia [Recovered/Resolved]
  - Foetal exposure during pregnancy [Recovered/Resolved]
  - Hyperbilirubinaemia [Recovered/Resolved]
  - Hypoglycaemia [Recovered/Resolved]
  - Low birth weight baby [Recovered/Resolved]
  - Neurodevelopmental disorder [Recovered/Resolved]
